FAERS Safety Report 8109487-4 (Version None)
Quarter: 2012Q1

REPORT INFORMATION
  Report Type: 
  Country: None (occurrence: None)
  Receive Date: 20120202
  Receipt Date: 20120112
  Transmission Date: 20120608
  Serious: No
  Sender: FDA-Public Use
  Company Number: US-AMGEN-USASP2012000234

PATIENT
  Age: 62 Year
  Sex: Male

DRUGS (1)
  1. ENBREL [Suspect]
     Indication: RHEUMATOID ARTHRITIS
     Dosage: 50 MG, QWK
     Dates: start: 20040415

REACTIONS (5)
  - PAIN [None]
  - CHILLS [None]
  - URINARY TRACT INFECTION [None]
  - HYPERHIDROSIS [None]
  - MUSCULOSKELETAL STIFFNESS [None]
